FAERS Safety Report 14188263 (Version 2)
Quarter: 2017Q4

REPORT INFORMATION
  Report Type: Spontaneous
  Country: CA (occurrence: CA)
  Receive Date: 20171114
  Receipt Date: 20171124
  Transmission Date: 20180321
  Serious: Yes (Other)
  Sender: FDA-Public Use
  Company Number: CA-BEH-2017085043

PATIENT
  Age: 57 Year
  Sex: Female

DRUGS (1)
  1. ALBUREX [Suspect]
     Active Substance: ALBUMIN HUMAN
     Indication: BLOOD ALBUMIN DECREASED
     Dosage: 14.9 ML, UNK
     Route: 042
     Dates: start: 20171024, end: 20171024

REACTIONS (3)
  - Body temperature increased [Recovered/Resolved]
  - Hypoxia [Recovered/Resolved]
  - Febrile nonhaemolytic transfusion reaction [Recovered/Resolved]

NARRATIVE: CASE EVENT DATE: 20171024
